FAERS Safety Report 20757398 (Version 1)
Quarter: 2022Q2

REPORT INFORMATION
  Report Type: Spontaneous
  Country: HR (occurrence: HR)
  Receive Date: 20220427
  Receipt Date: 20220427
  Transmission Date: 20220721
  Serious: Yes (Hospitalization)
  Sender: FDA-Public Use
  Company Number: None

PATIENT
  Age: 14 Year
  Sex: Female

DRUGS (2)
  1. ZOLOFT [Suspect]
     Active Substance: SERTRALINE HYDROCHLORIDE
     Dosage: 1400 MG, 1X/DAY (28 TABL 50 MG)
     Route: 048
     Dates: start: 20220323, end: 20220323
  2. DIAZEPAM [Suspect]
     Active Substance: DIAZEPAM
     Dosage: 200 MG, 1X/DAY (20 TABLET 10 MG)
     Route: 048
     Dates: start: 20220323, end: 20220323

REACTIONS (2)
  - Intentional overdose [Unknown]
  - Suicide attempt [Unknown]

NARRATIVE: CASE EVENT DATE: 20220323
